FAERS Safety Report 22074012 (Version 1)
Quarter: 2023Q1

REPORT INFORMATION
  Report Type: Spontaneous
  Country: LT (occurrence: LT)
  Receive Date: 20230308
  Receipt Date: 20230308
  Transmission Date: 20230417
  Serious: Yes (Hospitalization)
  Sender: FDA-Public Use
  Company Number: LT-PL-000105

PATIENT
  Age: 42 Year
  Sex: Male

DRUGS (3)
  1. DOXAZOSIN [Suspect]
     Active Substance: DOXAZOSIN MESYLATE
     Indication: Hypertension
     Route: 065
  2. LABETALOL [Suspect]
     Active Substance: LABETALOL\LABETALOL HYDROCHLORIDE
     Indication: Hypertension
     Route: 042
  3. MOXONIDINE [Suspect]
     Active Substance: MOXONIDINE
     Indication: Hypertensive crisis
     Route: 048

REACTIONS (12)
  - Posterior reversible encephalopathy syndrome [Unknown]
  - Epilepsy [Unknown]
  - Hypertension [Unknown]
  - Renal impairment [Unknown]
  - Hypervolaemia [Unknown]
  - Retinal haemorrhage [Unknown]
  - Aneurysm [Unknown]
  - Retinal exudates [Unknown]
  - Headache [Unknown]
  - Nausea [Unknown]
  - Vomiting [Unknown]
  - Dizziness [Unknown]
